FAERS Safety Report 16974450 (Version 1)
Quarter: 2019Q4

REPORT INFORMATION
  Report Type: Spontaneous
  Country: US (occurrence: US)
  Receive Date: 20191030
  Receipt Date: 20191030
  Transmission Date: 20200122
  Serious: Yes (Death, Hospitalization, Other)
  Sender: FDA-Public Use
  Company Number: US-ZYDUS-042591

PATIENT
  Age: 39 Year
  Sex: Female

DRUGS (1)
  1. LAMOTRIGINE. [Suspect]
     Active Substance: LAMOTRIGINE
     Indication: DEPRESSION

REACTIONS (14)
  - Vomiting [Unknown]
  - Hypotension [Unknown]
  - Photophobia [Unknown]
  - Meningitis aseptic [Unknown]
  - Back pain [Unknown]
  - Septic shock [Fatal]
  - Nausea [Unknown]
  - Respiratory depression [Unknown]
  - Pyrexia [Unknown]
  - Chills [Unknown]
  - Hepatic enzyme increased [Unknown]
  - Haemophagocytic lymphohistiocytosis [Fatal]
  - Thrombocytopenia [Unknown]
  - Neck pain [Unknown]
